FAERS Safety Report 9173409 (Version 1)
Quarter: 2013Q1

REPORT INFORMATION
  Report Type: Spontaneous
  Country: US (occurrence: US)
  Receive Date: 20130320
  Receipt Date: 20130320
  Transmission Date: 20140127
  Serious: Yes (Other)
  Sender: FDA-Public Use
  Company Number: US-AMGEN-USASP2013016819

PATIENT
  Sex: Female

DRUGS (3)
  1. PROLIA [Suspect]
     Indication: OSTEOPOROSIS
  2. CORTISONE [Concomitant]
  3. HYDROCODONE [Concomitant]

REACTIONS (6)
  - Dysstasia [Unknown]
  - Gait disturbance [Unknown]
  - Arthralgia [Unknown]
  - Swelling [Unknown]
  - Sleep disorder due to a general medical condition [Unknown]
  - Pain in extremity [Unknown]
